FAERS Safety Report 18887350 (Version 1)
Quarter: 2021Q1

REPORT INFORMATION
  Report Type: Report from Study
  Country: US (occurrence: US)
  Receive Date: 20210212
  Receipt Date: 20210212
  Transmission Date: 20210420
  Serious: Yes (Hospitalization, Other)
  Sender: FDA-Public Use
  Company Number: US-JNJFOC-20210204595

PATIENT
  Age: 83 Year
  Sex: Female
  Weight: 50 kg

DRUGS (3)
  1. ADEMPAS [Concomitant]
     Active Substance: RIOCIGUAT
  2. MACITENTAN [Suspect]
     Active Substance: MACITENTAN
     Indication: PULMONARY ARTERIAL HYPERTENSION
     Route: 048
  3. ELIQUIS [Concomitant]
     Active Substance: APIXABAN

REACTIONS (4)
  - Seizure [Unknown]
  - Pulmonary arterial hypertension [Unknown]
  - Right ventricular failure [Unknown]
  - Urinary incontinence [Unknown]

NARRATIVE: CASE EVENT DATE: 202101
